FAERS Safety Report 4594181-7 (Version None)
Quarter: 2005Q1

REPORT INFORMATION
  Report Type: 
  Country: None (occurrence: None)
  Receive Date: 20050301
  Receipt Date: 20050224
  Transmission Date: 20050727
  Serious: Yes (Hospitalization)
  Sender: FDA-Public Use
  Company Number: FR-GLAXOSMITHKLINE-B0372798A

PATIENT
  Age: 77 Year
  Sex: Male

DRUGS (1)
  1. ZELITREX [Suspect]
     Indication: HERPES ZOSTER OPHTHALMIC
     Dosage: 500MG SIX TIMES PER DAY
     Route: 048
     Dates: start: 20050117, end: 20050118

REACTIONS (3)
  - CONFUSIONAL STATE [None]
  - DIFFICULTY IN WALKING [None]
  - HALLUCINATION [None]
